FAERS Safety Report 6080749-8 (Version None)
Quarter: 2009Q1

REPORT INFORMATION
  Report Type: 
  Country: None (occurrence: None)
  Receive Date: 20090217
  Receipt Date: 20090210
  Transmission Date: 20090719
  Serious: Yes (Other)
  Sender: FDA-Public Use
  Company Number: US-TEVA-185196USA

PATIENT
  Sex: Female

DRUGS (3)
  1. GLIBENCLAMIDE 1.25 MG, 2.5 MG + 5 MG TABLETS [Suspect]
  2. GLIMEPIRIDE [Suspect]
  3. PIOGLITAZONE [Suspect]

REACTIONS (1)
  - RENAL IMPAIRMENT [None]
